FAERS Safety Report 9085941 (Version 1)
Quarter: 2013Q1

REPORT INFORMATION
  Report Type: Report from Study
  Country: US (occurrence: US)
  Receive Date: 20130131
  Receipt Date: 20130131
  Transmission Date: 20140127
  Serious: No
  Sender: FDA-Public Use
  Company Number: US-ABBOTT-12P-163-1010716-00

PATIENT
  Age: 79 None
  Sex: Female
  Weight: 135.29 kg

DRUGS (19)
  1. HUMIRA [Suspect]
     Indication: PSORIATIC ARTHROPATHY
     Dates: start: 20121112
  2. METHOTREXATE [Concomitant]
     Indication: PSORIATIC ARTHROPATHY
  3. LOSARTAN [Concomitant]
     Indication: HYPERTENSION
  4. ALLOPURINOL [Concomitant]
     Indication: GOUT
     Dates: start: 2010
  5. HYDROCODONE APAP [Concomitant]
     Indication: PAIN
  6. OMEPRAZOLE [Concomitant]
     Indication: GASTROOESOPHAGEAL REFLUX DISEASE
  7. BACLOFEN [Concomitant]
     Indication: MUSCLE SPASMS
  8. SIMVASTATIN [Concomitant]
     Indication: BLOOD CHOLESTEROL INCREASED
  9. TORSEMIDE [Concomitant]
     Indication: FLUID RETENTION
  10. EYE CAPS [Concomitant]
     Indication: MACULAR DEGENERATION
  11. METORPOLOL [Concomitant]
     Indication: HYPERTENSION
  12. SYNTHROID [Concomitant]
     Indication: HYPOTHYROIDISM
  13. INHALER [Concomitant]
     Indication: PRODUCT USED FOR UNKNOWN INDICATION
  14. CRANBERRY TABLETS [Concomitant]
     Indication: RENAL DISORDER
  15. CINNAMON [Concomitant]
     Indication: GLUCOSE TOLERANCE IMPAIRED
  16. POTASSIUM [Concomitant]
     Indication: PRODUCT USED FOR UNKNOWN INDICATION
  17. IRON TABLETS [Concomitant]
     Indication: HAEMOGLOBIN DECREASED
     Dates: start: 2011
  18. CALCITROL [Concomitant]
     Indication: PRODUCT USED FOR UNKNOWN INDICATION
  19. LIPOZENE [Concomitant]
     Indication: WEIGHT DECREASED
     Dates: start: 201210

REACTIONS (2)
  - Weight increased [Not Recovered/Not Resolved]
  - Local swelling [Not Recovered/Not Resolved]
